FAERS Safety Report 6022225-4 (Version None)
Quarter: 2008Q4

REPORT INFORMATION
  Report Type: 
  Country: None (occurrence: None)
  Receive Date: 20081229
  Receipt Date: 20081222
  Transmission Date: 20090506
  Serious: Yes (Hospitalization)
  Sender: FDA-Public Use
  Company Number: US-ELI_LILLY_AND_COMPANY-US200812005391

PATIENT
  Sex: Male

DRUGS (4)
  1. HUMALOG [Suspect]
     Route: 058
  2. COUMADIN [Concomitant]
  3. FUROSEMIDE [Concomitant]
  4. LANTUS [Concomitant]

REACTIONS (7)
  - ANKYLOSING SPONDYLITIS [None]
  - CARDIAC DISORDER [None]
  - CARDIAC OPERATION [None]
  - DYSPNOEA [None]
  - FLUID OVERLOAD [None]
  - GLYCOSYLATED HAEMOGLOBIN INCREASED [None]
  - WEIGHT INCREASED [None]
